FAERS Safety Report 9725464 (Version 1)
Quarter: 2013Q4

REPORT INFORMATION
  Report Type: Spontaneous
  Country: US (occurrence: None)
  Receive Date: 20131202
  Receipt Date: 20131202
  Transmission Date: 20140711
  Serious: No
  Sender: FDA-Public Use
  Company Number: None

PATIENT
  Age: 33 Year
  Sex: Male
  Weight: 82.56 kg

DRUGS (2)
  1. ABILIFY [Suspect]
     Indication: DEPRESSION
     Dosage: 1 TAB. BY MOUTH 1 TIME NIGHT
     Route: 048
  2. ABILIFY [Suspect]
     Indication: MOOD SWINGS
     Dosage: 1 TAB. BY MOUTH 1 TIME NIGHT
     Route: 048

REACTIONS (2)
  - Dizziness [None]
  - Self-medication [None]
